FAERS Safety Report 6038562-3 (Version None)
Quarter: 2009Q1

REPORT INFORMATION
  Report Type: 
  Country: None (occurrence: None)
  Receive Date: 20090114
  Receipt Date: 20090114
  Transmission Date: 20090719
  Serious: Yes (Hospitalization)
  Sender: FDA-Public Use
  Company Number: None

PATIENT
  Sex: Male
  Weight: 92.5338 kg

DRUGS (6)
  1. IL-2 [Suspect]
     Indication: RENAL CELL CARCINOMA
     Dosage: 56.7 MMU
     Dates: start: 20081203, end: 20081208
  2. PROCRIT [Concomitant]
  3. NYQUIL [Suspect]
  4. AMBIEN [Concomitant]
  5. FERROUS GLUCONATE [Concomitant]
  6. FLOMAX [Concomitant]

REACTIONS (8)
  - CENTRAL LINE INFECTION [None]
  - CHEST PAIN [None]
  - DEEP VEIN THROMBOSIS [None]
  - HYPOAESTHESIA [None]
  - JUGULAR VEIN THROMBOSIS [None]
  - PNEUMONIA [None]
  - SUBCLAVIAN VEIN THROMBOSIS [None]
  - VENA CAVA THROMBOSIS [None]
